FAERS Safety Report 5470645-9 (Version None)
Quarter: 2007Q3

REPORT INFORMATION
  Report Type: 
  Country: None (occurrence: None)
  Receive Date: 20070928
  Receipt Date: 20070911
  Transmission Date: 20080115
  Serious: Yes (Death, Other)
  Sender: FDA-Public Use
  Company Number: JP-ELI_LILLY_AND_COMPANY-JP200709006674

PATIENT
  Age: 85 Year
  Sex: Male

DRUGS (1)
  1. GEMZAR [Suspect]
     Indication: PANCREATIC CARCINOMA
     Dosage: 1000 MG/M2, OTHER
     Route: 042
     Dates: start: 20060101

REACTIONS (3)
  - MALIGNANT NEOPLASM PROGRESSION [None]
  - NAUSEA [None]
  - PLEURAL EFFUSION [None]
